FAERS Safety Report 11804921 (Version 2)
Quarter: 2016Q3

REPORT INFORMATION
  Report Type: Spontaneous
  Country: US (occurrence: US)
  Receive Date: 20151205
  Receipt Date: 20160729
  Transmission Date: 20161109
  Serious: Yes (Other)
  Sender: FDA-Public Use
  Company Number: US-BRISTOL-MYERS SQUIBB COMPANY-BMS-2015-083615

PATIENT
  Age: 48 Year
  Sex: Male

DRUGS (2)
  1. HYDROXYUREA. [Suspect]
     Active Substance: HYDROXYUREA
     Indication: PAIN
     Dosage: 2000 MG, QD
     Route: 065
  2. HYDROXYUREA. [Suspect]
     Active Substance: HYDROXYUREA
     Dosage: 1500 MG, QD
     Route: 065

REACTIONS (2)
  - Anaemia macrocytic [Recovering/Resolving]
  - Anaemia megaloblastic [Recovering/Resolving]
